FAERS Safety Report 4559966-1 (Version None)
Quarter: 2005Q1

REPORT INFORMATION
  Report Type: 
  Country: None (occurrence: None)
  Receive Date: 20050120
  Receipt Date: 20050120
  Transmission Date: 20050727
  Serious: Yes (Other)
  Sender: FDA-Public Use
  Company Number: None

PATIENT
  Sex: Male
  Weight: 139.2543 kg

DRUGS (2)
  1. PERCODAN [Suspect]
     Indication: CHEST PAIN
     Dosage: 1 TABLET QID
  2. ... [Suspect]
     Indication: BACK PAIN
     Dosage: ONE QID

REACTIONS (2)
  - INADEQUATE ANALGESIA [None]
  - PHARMACEUTICAL PRODUCT COMPLAINT [None]
